FAERS Safety Report 24773166 (Version 1)
Quarter: 2024Q4

REPORT INFORMATION
  Report Type: Report from Study
  Country: US (occurrence: US)
  Receive Date: 20241225
  Receipt Date: 20241225
  Transmission Date: 20250114
  Serious: Yes (Other)
  Sender: ABBVIE
  Company Number: US-ABBVIE-6016682

PATIENT
  Age: 52 Year
  Sex: Female
  Weight: 132 kg

DRUGS (1)
  1. RINVOQ [Suspect]
     Active Substance: UPADACITINIB
     Indication: Rheumatoid arthritis
     Dosage: FORM STRENGTH: 15? FORM STRENGTH UNITS: MILLIGRAM
     Route: 048
     Dates: start: 20210301, end: 20241116

REACTIONS (3)
  - Fall [Recovered/Resolved]
  - Foot fracture [Recovering/Resolving]
  - Joint stiffness [Recovering/Resolving]

NARRATIVE: CASE EVENT DATE: 20240901
